FAERS Safety Report 9294833 (Version 1)
Quarter: 2013Q1

REPORT INFORMATION
  Report Type: Spontaneous
  Country: US (occurrence: None)
  Receive Date: 20121214
  Receipt Date: 20121214
  Transmission Date: 20140127
  Serious: Yes (Other)
  Sender: FDA-Public Use
  Company Number: 1352027

PATIENT
  Sex: Female

DRUGS (1)
  1. CARBOPLATIN (CARBOPLATIN) [Suspect]
     Indication: NEOPLASM MALIGNANT

REACTIONS (1)
  - Abdominal infection [None]
